FAERS Safety Report 14154692 (Version 2)
Quarter: 2017Q4

REPORT INFORMATION
  Report Type: Report from Study
  Country: US (occurrence: US)
  Receive Date: 20171102
  Receipt Date: 20171201
  Transmission Date: 20180321
  Serious: Yes (Hospitalization)
  Sender: FDA-Public Use
  Company Number: US-GILEAD-2017-0302628

PATIENT
  Age: 56 Year
  Sex: Female

DRUGS (3)
  1. AZTREONAM LYSINE [Suspect]
     Active Substance: AZTREONAM LYSINE
     Indication: PSEUDOMONAS INFECTION
     Dosage: 75 MG, UNK
     Route: 055
     Dates: start: 20110112
  2. AZTREONAM LYSINE [Suspect]
     Active Substance: AZTREONAM LYSINE
     Indication: CYSTIC FIBROSIS LUNG
     Dosage: 75 MG, UNK
     Route: 055
     Dates: start: 20101215
  3. COLISTIMETHATE /00013204/ [Suspect]
     Active Substance: COLISTIMETHATE SODIUM
     Indication: PRODUCT USED FOR UNKNOWN INDICATION
     Route: 065

REACTIONS (3)
  - Dizziness [Recovered/Resolved]
  - Cystic fibrosis respiratory infection suppression [Not Recovered/Not Resolved]
  - Vision blurred [Unknown]

NARRATIVE: CASE EVENT DATE: 20171030
